FAERS Safety Report 15740270 (Version 1)
Quarter: 2018Q4

REPORT INFORMATION
  Report Type: Spontaneous
  Country: US (occurrence: US)
  Receive Date: 20181219
  Receipt Date: 20181219
  Transmission Date: 20190205
  Serious: Yes (Life-Threatening, Hospitalization)
  Sender: FDA-Public Use
  Company Number: US-ASTELLAS-2018US053600

PATIENT
  Age: 67 Year
  Sex: Female

DRUGS (2)
  1. TACROLIMUS. [Suspect]
     Active Substance: TACROLIMUS
     Indication: GRAFT VERSUS HOST DISEASE IN GASTROINTESTINAL TRACT
     Dosage: 0.5 MG, ONCE DAILY
     Route: 065
  2. PREDNISONE. [Suspect]
     Active Substance: PREDNISONE
     Indication: GRAFT VERSUS HOST DISEASE IN GASTROINTESTINAL TRACT
     Route: 065

REACTIONS (9)
  - Hypervolaemia [Recovering/Resolving]
  - Renal failure [Recovered/Resolved]
  - Hyperkalaemia [Recovering/Resolving]
  - Encephalopathy [Recovering/Resolving]
  - Enterocolitis haemorrhagic [Recovered/Resolved]
  - Haemolytic uraemic syndrome [Recovered/Resolved]
  - Escherichia infection [Recovered/Resolved]
  - Product use in unapproved indication [Unknown]
  - Thrombotic microangiopathy [Recovered/Resolved]
